FAERS Safety Report 22916945 (Version 2)
Quarter: 2025Q3

REPORT INFORMATION
  Report Type: Spontaneous
  Country: US (occurrence: US)
  Receive Date: 20230907
  Receipt Date: 20250820
  Transmission Date: 20251020
  Serious: No
  Sender: PFIZER
  Company Number: US-PFIZER INC-PV202300151057

PATIENT
  Age: 65 Year
  Sex: Female

DRUGS (9)
  1. XELJANZ XR [Suspect]
     Active Substance: TOFACITINIB CITRATE
     Dosage: 11 MG, DAILY
  2. ALBUTEROL [Concomitant]
     Active Substance: ALBUTEROL
  3. AMITRIPTYLINE [Concomitant]
     Active Substance: AMITRIPTYLINE
  4. CELEXA [Concomitant]
     Active Substance: CITALOPRAM HYDROBROMIDE
  5. ARNUITY ELLIPTA [Concomitant]
     Active Substance: FLUTICASONE FUROATE
  6. GABAPENTIN [Concomitant]
     Active Substance: GABAPENTIN
  7. ARAVA [Concomitant]
     Active Substance: LEFLUNOMIDE
  8. LORAZEPAM [Concomitant]
     Active Substance: LORAZEPAM
  9. TRAMADOL [Concomitant]
     Active Substance: TRAMADOL

REACTIONS (2)
  - Arthropathy [Unknown]
  - Arthritis infective [Unknown]
